FAERS Safety Report 6126331-5 (Version None)
Quarter: 2009Q1

REPORT INFORMATION
  Report Type: 
  Country: None (occurrence: None)
  Receive Date: 20090320
  Receipt Date: 20090310
  Transmission Date: 20090719
  Serious: Yes (Hospitalization)
  Sender: FDA-Public Use
  Company Number: GB-ELI_LILLY_AND_COMPANY-GB200903002852

PATIENT
  Sex: Male

DRUGS (2)
  1. HUMULIN R [Suspect]
     Dosage: 24 U, EACH MORNING
     Route: 065
  2. HUMULIN R [Suspect]
     Dosage: 18 U, EACH EVENING
     Route: 065

REACTIONS (1)
  - HOSPITALISATION [None]
